FAERS Safety Report 5258983-6 (Version None)
Quarter: 2007Q1

REPORT INFORMATION
  Report Type: 
  Country: None (occurrence: None)
  Receive Date: 20070305
  Receipt Date: 20070216
  Transmission Date: 20070707
  Serious: Yes (Hospitalization)
  Sender: FDA-Public Use
  Company Number: 2007RR-05874

PATIENT
  Age: 55 Year
  Sex: Female

DRUGS (2)
  1. IBUPROFEN [Suspect]
     Indication: ANALGESIC EFFECT
  2. DESMOPRESSIN (DESMOPRESSIN) UNKNOWN [Suspect]
     Indication: TOOTH EXTRACTION

REACTIONS (7)
  - COMA [None]
  - DIZZINESS [None]
  - DRUG DEPENDENCE [None]
  - EPILEPSY [None]
  - HYPONATRAEMIA [None]
  - NAUSEA [None]
  - VOMITING [None]
